FAERS Safety Report 8844834 (Version 1)
Quarter: 2012Q4

REPORT INFORMATION
  Report Type: 
  Country: IT (occurrence: IT)
  Receive Date: 20121017
  Receipt Date: 20121017
  Transmission Date: 20130627
  Serious: Yes (Death)
  Sender: FDA-Public Use
  Company Number: IT-CELGENEUS-083-21880-12101113

PATIENT

DRUGS (3)
  1. REVLIMID [Suspect]
     Indication: MULTIPLE MYELOMA
     Route: 048
     Dates: start: 2007, end: 2010
  2. THALIDOMIDE [Suspect]
     Indication: MULTIPLE MYELOMA
     Route: 048
     Dates: start: 2007, end: 2010
  3. BORTEZOMIB [Concomitant]
     Indication: MULTIPLE MYELOMA
     Route: 065
     Dates: start: 2007, end: 2010

REACTIONS (2)
  - Death [Fatal]
  - Plasma cell myeloma [Unknown]
